FAERS Safety Report 8356131-7 (Version None)
Quarter: 2012Q1

REPORT INFORMATION
  Report Type: 
  Country: None (occurrence: None)
  Receive Date: 20120315
  Receipt Date: 20110517
  Transmission Date: 20120608
  Serious: No
  Sender: FDA-Public Use
  Company Number: PHHY2011US19245

PATIENT
  Age: 43 Year
  Sex: Male
  Weight: 150.1 kg

DRUGS (5)
  1. METFORMIN HCL [Concomitant]
  2. GILENYA [Suspect]
     Indication: MULTIPLE SCLEROSIS
     Dosage: 1 DF, QD, ORAL
     Route: 048
     Dates: start: 20110304
  3. LEXAPRO [Concomitant]
  4. BISOPROLOL FUMARATE [Concomitant]
  5. JANUVIA [Concomitant]

REACTIONS (5)
  - FEELING HOT [None]
  - DRUG INEFFECTIVE [None]
  - BACK PAIN [None]
  - FATIGUE [None]
  - VISION BLURRED [None]
